FAERS Safety Report 12990649 (Version 1)
Quarter: 2016Q4

REPORT INFORMATION
  Report Type: Spontaneous
  Country: US (occurrence: US)
  Receive Date: 20161130
  Receipt Date: 20161130
  Transmission Date: 20170207
  Serious: Yes (Hospitalization)
  Sender: FDA-Public Use
  Company Number: None

PATIENT
  Age: 74 Year
  Weight: 72 kg

DRUGS (1)
  1. GOLIMUMAB INJECTION [Suspect]
     Active Substance: GOLIMUMAB
     Indication: RHEUMATOID ARTHRITIS

REACTIONS (5)
  - Erythema [None]
  - Pain [None]
  - Swollen tongue [None]
  - Neoplasm skin [None]
  - Limb mass [None]

NARRATIVE: CASE EVENT DATE: 20161118
